FAERS Safety Report 26125312 (Version 1)
Quarter: 2025Q4

REPORT INFORMATION
  Report Type: Spontaneous
  Country: EU (occurrence: EU)
  Receive Date: 20251205
  Receipt Date: 20251205
  Transmission Date: 20260118
  Serious: Yes (Other)
  Sender: CELLTRION
  Company Number: EU-AMGEN-DEUSP2025228437

PATIENT

DRUGS (3)
  1. TRASTUZUMAB [Suspect]
     Active Substance: TRASTUZUMAB
     Indication: Hormone receptor negative HER2 positive breast cancer
     Dosage: UNK UNK, Q3WK, (FOR ONE YEAR)
     Route: 058
  2. XGEVA [Suspect]
     Active Substance: DENOSUMAB
     Indication: Metastases to bone
     Dosage: UNK
     Route: 065
     Dates: start: 2018
  3. PERTUZUMAB [Concomitant]
     Active Substance: PERTUZUMAB
     Indication: Hormone receptor negative HER2 positive breast cancer

REACTIONS (6)
  - Metastases to meninges [Unknown]
  - Metastases to central nervous system [Unknown]
  - Metastases to bone [Unknown]
  - Neutropenia [Unknown]
  - Liver function test increased [Unknown]
  - Off label use [Unknown]

NARRATIVE: CASE EVENT DATE: 20180101
